FAERS Safety Report 5653447-X (Version None)
Quarter: 2008Q1

REPORT INFORMATION
  Report Type: 
  Country: None (occurrence: None)
  Receive Date: 20080131
  Receipt Date: 20071024
  Transmission Date: 20080703
  Serious: No
  Sender: FDA-Public Use
  Company Number: US200710006264

PATIENT
  Age: 53 Year
  Sex: Female
  Weight: 141.5 kg

DRUGS (6)
  1. BYETTA [Suspect]
     Indication: TYPE 2 DIABETES MELLITUS
     Dosage: 5 UG, 2/D, SUBCUTANEOUS ; 10 UG, 2/D, SUBCUTANEOUS
     Route: 058
     Dates: start: 20060101, end: 20060101
  2. BYETTA [Suspect]
     Indication: TYPE 2 DIABETES MELLITUS
     Dosage: 5 UG, 2/D, SUBCUTANEOUS ; 10 UG, 2/D, SUBCUTANEOUS
     Route: 058
     Dates: start: 20060101
  3. NEXIUM [Concomitant]
  4. AMARYL [Concomitant]
  5. ACTOS [Concomitant]
  6. METFORMIN HCL [Concomitant]

REACTIONS (8)
  - ABDOMINAL PAIN [None]
  - ADENOIDAL HYPERTROPHY [None]
  - BLOOD GLUCOSE DECREASED [None]
  - DIARRHOEA [None]
  - GASTRIC DISORDER [None]
  - NAUSEA [None]
  - SPLENOMEGALY [None]
  - VOMITING [None]
